FAERS Safety Report 6982008-5 (Version None)
Quarter: 2010Q3

REPORT INFORMATION
  Report Type: 
  Country: None (occurrence: None)
  Receive Date: 20100914
  Receipt Date: 20091125
  Transmission Date: 20110219
  Serious: No
  Sender: FDA-Public Use
  Company Number: US-PFIZER INC-2009275090

PATIENT
  Sex: Male
  Weight: 68.9 kg

DRUGS (2)
  1. LYRICA [Suspect]
     Dosage: 150 MG, 1X/DAY
  2. ATIVAN [Concomitant]
     Dosage: 1 MG, 1X/DAY

REACTIONS (1)
  - URINE OUTPUT DECREASED [None]
